FAERS Safety Report 13051152 (Version 1)
Quarter: 2016Q4

REPORT INFORMATION
  Report Type: Spontaneous
  Country: US (occurrence: US)
  Receive Date: 20161221
  Receipt Date: 20161221
  Transmission Date: 20170207
  Serious: Yes (Hospitalization)
  Sender: FDA-Public Use
  Company Number: None

PATIENT
  Age: 59 Year
  Sex: Female
  Weight: 133.65 kg

DRUGS (6)
  1. ENFORCE [Concomitant]
  2. ROCEPHIN [Suspect]
     Active Substance: CEFTRIAXONE SODIUM
     Indication: EAR PAIN
     Dosage: ?          OTHER FREQUENCY:1X DOSAGE;?
     Route: 030
     Dates: start: 20161219, end: 20161219
  3. FLONASE [Concomitant]
     Active Substance: FLUTICASONE PROPIONATE
  4. STRETCH [Concomitant]
  5. MAGNESIUM [Concomitant]
     Active Substance: MAGNESIUM
  6. MULTIVITAMIN [Concomitant]
     Active Substance: VITAMINS

REACTIONS (3)
  - Blood pressure increased [None]
  - Pharyngeal oedema [None]
  - Chest pain [None]

NARRATIVE: CASE EVENT DATE: 20161219
